FAERS Safety Report 6154352-5 (Version None)
Quarter: 2009Q2

REPORT INFORMATION
  Report Type: 
  Country: None (occurrence: None)
  Receive Date: 20090414
  Receipt Date: 20090312
  Transmission Date: 20091009
  Serious: No
  Sender: FDA-Public Use
  Company Number: A0772785A

PATIENT
  Age: 73 Year
  Sex: Female

DRUGS (2)
  1. REQUIP XL [Suspect]
     Indication: PARKINSON'S DISEASE
     Dosage: 6MG PER DAY
     Route: 048
     Dates: start: 20080801, end: 20090304
  2. AZILECT [Concomitant]

REACTIONS (4)
  - ANOREXIA [None]
  - DIZZINESS [None]
  - FATIGUE [None]
  - NAUSEA [None]
